FAERS Safety Report 16629971 (Version 1)
Quarter: 2019Q3

REPORT INFORMATION
  Report Type: Spontaneous
  Country: DE (occurrence: DE)
  Receive Date: 20190725
  Receipt Date: 20190725
  Transmission Date: 20191004
  Serious: Yes (Other)
  Sender: FDA-Public Use
  Company Number: PHHY2019DE160701

PATIENT
  Sex: Female

DRUGS (1)
  1. ZYKADIA [Suspect]
     Active Substance: CERITINIB
     Indication: NON-SMALL CELL LUNG CANCER
     Dosage: 450 MG, UNK
     Route: 048
     Dates: start: 2013

REACTIONS (4)
  - Varicose veins of abdominal wall [Unknown]
  - Superior vena cava stenosis [Unknown]
  - Neoplasm [Unknown]
  - Collateral circulation [Unknown]

NARRATIVE: CASE EVENT DATE: 2019
